FAERS Safety Report 6949667-4 (Version None)
Quarter: 2010Q3

REPORT INFORMATION
  Report Type: 
  Country: None (occurrence: None)
  Receive Date: 20100828
  Receipt Date: 20100105
  Transmission Date: 20110219
  Serious: No
  Sender: FDA-Public Use
  Company Number: US-ABBOTT-10P-163-0618453-00

PATIENT
  Sex: Female
  Weight: 74.002 kg

DRUGS (5)
  1. NIASPAN [Suspect]
     Indication: BLOOD CHOLESTEROL INCREASED
     Route: 048
     Dates: start: 20091222
  2. NIASPAN [Suspect]
     Indication: BLOOD TRIGLYCERIDES INCREASED
  3. LEXAPRO [Concomitant]
     Indication: NERVOUSNESS
     Route: 048
  4. LEXAPRO [Concomitant]
     Indication: DEPRESSION
  5. ASPIRIN [Concomitant]
     Indication: CARDIAC DISORDER
     Route: 048

REACTIONS (3)
  - DIARRHOEA [None]
  - HYPERSOMNIA [None]
  - OEDEMA PERIPHERAL [None]
